FAERS Safety Report 8166732-7 (Version None)
Quarter: 2012Q1

REPORT INFORMATION
  Report Type: 
  Country: None (occurrence: None)
  Receive Date: 20120227
  Receipt Date: 20120222
  Transmission Date: 20120608
  Serious: Yes (Other)
  Sender: FDA-Public Use
  Company Number: US-ROCHE-785058

PATIENT
  Sex: Male
  Weight: 79.45 kg

DRUGS (2)
  1. NAPROXEN (ALEVE) [Concomitant]
  2. ACCUTANE [Suspect]
     Indication: ACNE
     Dates: start: 19930101, end: 19940601

REACTIONS (4)
  - COLITIS ULCERATIVE [None]
  - INFLAMMATORY BOWEL DISEASE [None]
  - ANXIETY [None]
  - GASTROINTESTINAL INJURY [None]
